FAERS Safety Report 10248643 (Version 2)
Quarter: 2014Q3

REPORT INFORMATION
  Report Type: Spontaneous
  Country: US (occurrence: US)
  Receive Date: 20140620
  Receipt Date: 20140822
  Transmission Date: 20150326
  Serious: Yes (Death)
  Sender: FDA-Public Use
  Company Number: US-BRACCO-010988

PATIENT
  Age: 85 Year
  Sex: Female

DRUGS (4)
  1. ASPIRIN. [Concomitant]
     Active Substance: ASPIRIN
  2. METOPROLOL [Concomitant]
     Active Substance: METOPROLOL
  3. OMEPRAZOLE. [Concomitant]
     Active Substance: OMEPRAZOLE
  4. ISOVUE 370 [Suspect]
     Active Substance: IOPAMIDOL
     Indication: COMPUTERISED TOMOGRAM
     Route: 042
     Dates: start: 20140613, end: 20140613

REACTIONS (5)
  - Pulse abnormal [Fatal]
  - Swollen tongue [Unknown]
  - Urticaria [Unknown]
  - Dyspnoea [Fatal]
  - Abdominal pain [Unknown]

NARRATIVE: CASE EVENT DATE: 20140613
